FAERS Safety Report 6831214-9 (Version None)
Quarter: 2010Q3

REPORT INFORMATION
  Report Type: 
  Country: None (occurrence: None)
  Receive Date: 20100709
  Receipt Date: 20100709
  Transmission Date: 20110219
  Serious: No
  Sender: FDA-Public Use
  Company Number: None

PATIENT
  Age: 62 Year
  Sex: Male
  Weight: 65.9 kg

DRUGS (2)
  1. FORTEO [Suspect]
     Indication: MULTIPLE FRACTURES
     Dosage: TERAPERITIDE DAILY INJECTION
     Route: 058
     Dates: start: 20100629, end: 20100630
  2. FORTEO [Suspect]
     Indication: OSTEOPOROSIS
     Dosage: TERAPERITIDE DAILY INJECTION
     Route: 058
     Dates: start: 20100629, end: 20100630

REACTIONS (4)
  - ABDOMINAL DISTENSION [None]
  - ABDOMINAL PAIN UPPER [None]
  - CHEST PAIN [None]
  - FEELING ABNORMAL [None]
